FAERS Safety Report 23978064 (Version 2)
Quarter: 2025Q2

REPORT INFORMATION
  Report Type: Spontaneous
  Country: US (occurrence: US)
  Receive Date: 20240614
  Receipt Date: 20250616
  Transmission Date: 20250717
  Serious: No
  Sender: ENDO
  Company Number: US-ENDO PHARMACEUTICALS INC-2024-001714

PATIENT
  Sex: Female

DRUGS (4)
  1. SUPPRELIN LA [Suspect]
     Active Substance: HISTRELIN ACETATE
     Indication: Precocious puberty
     Route: 058
  2. SUPPRELIN LA [Suspect]
     Active Substance: HISTRELIN ACETATE
     Indication: Precocious puberty
     Route: 058
  3. SUPPRELIN LA [Suspect]
     Active Substance: HISTRELIN ACETATE
     Indication: Precocious puberty
     Route: 058
  4. LUPRON [Concomitant]
     Active Substance: LEUPROLIDE ACETATE
     Indication: Precocious puberty
     Route: 065

REACTIONS (1)
  - Drug ineffective [Unknown]
